FAERS Safety Report 4316489-2 (Version None)
Quarter: 2004Q1

REPORT INFORMATION
  Report Type: 
  Country: None (occurrence: None)
  Receive Date: 20040311
  Receipt Date: 20040301
  Transmission Date: 20041129
  Serious: Yes (Hospitalization)
  Sender: FDA-Public Use
  Company Number: SE-JNJFOC-20040300339

PATIENT
  Age: 83 Year
  Sex: Male

DRUGS (2)
  1. TRAMADOL HCL [Suspect]
     Indication: BACK PAIN
     Dosage: 50 MG, 1 IN 1 DAY ORAL
     Route: 048
     Dates: start: 20031010, end: 20031031
  2. ACETAMINOPHEN [Concomitant]

REACTIONS (10)
  - BLISTER [None]
  - DRUG HYPERSENSITIVITY [None]
  - ERYTHEMA [None]
  - HAEMATOCHEZIA [None]
  - MUCOUS MEMBRANE DISORDER [None]
  - OEDEMA PERIPHERAL [None]
  - PETECHIAE [None]
  - SKIN NECROSIS [None]
  - ULCER HAEMORRHAGE [None]
  - WOUND SECRETION [None]
